FAERS Safety Report 4807424-9 (Version None)
Quarter: 2005Q4

REPORT INFORMATION
  Report Type: 
  Country: None (occurrence: None)
  Receive Date: 20051024
  Receipt Date: 20050913
  Transmission Date: 20060501
  Serious: Yes (Hospitalization)
  Sender: FDA-Public Use
  Company Number: US-MERCK-0509USA01839

PATIENT
  Age: 50 Year
  Sex: Male
  Weight: 98 kg

DRUGS (4)
  1. VIOXX [Suspect]
     Indication: RHEUMATOID ARTHRITIS
     Route: 048
     Dates: start: 20000101, end: 20030101
  2. HYDRODIURIL [Concomitant]
     Route: 065
  3. PROZAC [Concomitant]
     Indication: DEPRESSION
     Route: 065
  4. [THERAPY UNSPECIFIED] [Concomitant]
     Route: 065

REACTIONS (4)
  - ASTHMA [None]
  - DEPRESSION [None]
  - MYOCARDIAL INFARCTION [None]
  - PNEUMONIA [None]
